FAERS Safety Report 5237322-0 (Version None)
Quarter: 2007Q1

REPORT INFORMATION
  Report Type: 
  Country: None (occurrence: None)
  Receive Date: 20070213
  Receipt Date: 20070203
  Transmission Date: 20070707
  Serious: Yes (Hospitalization)
  Sender: FDA-Public Use
  Company Number: HQWYE604105FEB07

PATIENT
  Age: 60 Year
  Sex: Male
  Weight: 69 kg

DRUGS (3)
  1. RAPAMUNE [Suspect]
     Indication: PROPHYLAXIS AGAINST TRANSPLANT REJECTION
     Route: 048
     Dates: start: 20061115, end: 20061224
  2. ROCALTROL [Concomitant]
     Indication: HYPOCALCAEMIA
     Dosage: UNSPECIFIED
     Dates: start: 20061115
  3. PREDNISOLONE [Concomitant]
     Dosage: UNSPECIFIED
     Dates: start: 20061115

REACTIONS (2)
  - APLASIA PURE RED CELL [None]
  - WOUND INFECTION [None]
